FAERS Safety Report 17046524 (Version 1)
Quarter: 2019Q4

REPORT INFORMATION
  Report Type: Report from Study
  Country: US (occurrence: US)
  Receive Date: 20191119
  Receipt Date: 20191119
  Transmission Date: 20200122
  Serious: No
  Sender: FDA-Public Use
  Company Number: NVSC2019US037585

PATIENT
  Sex: Male
  Weight: 102.95 kg

DRUGS (1)
  1. TREPROSTINIL. [Suspect]
     Active Substance: TREPROSTINIL
     Indication: PULMONARY ARTERIAL HYPERTENSION
     Dosage: 80NG/KG/MIN, CONTINUOUS
     Route: 042
     Dates: start: 20190415

REACTIONS (1)
  - Nasopharyngitis [Unknown]
